FAERS Safety Report 5689094-3 (Version None)
Quarter: 2008Q1

REPORT INFORMATION
  Report Type: 
  Country: None (occurrence: None)
  Receive Date: 20080331
  Receipt Date: 19730219
  Transmission Date: 20080703
  Serious: Yes (Death, Other)
  Sender: FDA-Public Use
  Company Number: GB-ROCHE-730411162001

PATIENT
  Age: 42 Year
  Sex: Male

DRUGS (2)
  1. VALIUM [Suspect]
     Indication: DRUG USE FOR UNKNOWN INDICATION
     Route: 048
     Dates: start: 19730115, end: 19730115
  2. ALCOHOL [Suspect]
     Indication: DRUG USE FOR UNKNOWN INDICATION
     Dosage: I BOTTLE OF WHISKY
     Route: 048
     Dates: start: 19730115, end: 19730115

REACTIONS (3)
  - ALCOHOL POISONING [None]
  - OVERDOSE [None]
  - THERAPEUTIC AGENT TOXICITY [None]
